FAERS Safety Report 17678153 (Version 5)
Quarter: 2020Q2

REPORT INFORMATION
  Report Type: Report from Study
  Country: None (occurrence: US)
  Receive Date: 20200417
  Receipt Date: 20200624
  Transmission Date: 20200714
  Serious: Yes (Hospitalization)
  Sender: FDA-Public Use
  Company Number: US-ABBVIE-20K-163-3368098-00

PATIENT
  Sex: Female

DRUGS (2)
  1. HUMIRA [Suspect]
     Active Substance: ADALIMUMAB
     Indication: RHEUMATOID ARTHRITIS
     Route: 058
     Dates: start: 20190805, end: 20200304
  2. HUMIRA [Suspect]
     Active Substance: ADALIMUMAB
     Indication: RHEUMATOID ARTHRITIS
     Route: 058
     Dates: start: 2020

REACTIONS (12)
  - Gait disturbance [Unknown]
  - Pain in extremity [Recovering/Resolving]
  - Ill-defined disorder [Unknown]
  - Pneumonia [Recovered/Resolved]
  - Loss of personal independence in daily activities [Recovering/Resolving]
  - Depressed mood [Recovering/Resolving]
  - Pleurisy [Recovered/Resolved]
  - Joint range of motion decreased [Unknown]
  - Pleurisy [Recovered/Resolved]
  - Arthralgia [Recovering/Resolving]
  - Insomnia [Unknown]
  - Pain [Unknown]

NARRATIVE: CASE EVENT DATE: 2020
